FAERS Safety Report 6872556-0 (Version None)
Quarter: 2010Q3

REPORT INFORMATION
  Report Type: 
  Country: None (occurrence: None)
  Receive Date: 20100723
  Receipt Date: 20081029
  Transmission Date: 20110219
  Serious: No
  Sender: FDA-Public Use
  Company Number: US-PFIZER INC-2008084845

PATIENT
  Sex: Female
  Weight: 85.28 kg

DRUGS (2)
  1. CHANTIX [Suspect]
     Indication: SMOKING CESSATION THERAPY
     Route: 048
     Dates: start: 20080805, end: 20080926
  2. ZOLOFT [Concomitant]
     Indication: DEPRESSION

REACTIONS (1)
  - AGEUSIA [None]
